FAERS Safety Report 7905048-8 (Version None)
Quarter: 2011Q4

REPORT INFORMATION
  Report Type: 
  Country: None (occurrence: None)
  Receive Date: 20111108
  Receipt Date: 20111024
  Transmission Date: 20120403
  Serious: Yes (Life-Threatening, Hospitalization, Other)
  Sender: FDA-Public Use
  Company Number: 2011MA015718

PATIENT
  Age: 5 Year
  Sex: Male

DRUGS (2)
  1. FEVERALL [Suspect]
     Indication: PYREXIA
     Dosage: 1X;RTL
     Route: 054
  2. DIAZEPAM [Suspect]
     Indication: CONVULSION
     Dosage: 0.5 MG/KG;1X;RTL
     Route: 054

REACTIONS (7)
  - RESPIRATORY DEPRESSION [None]
  - UNRESPONSIVE TO STIMULI [None]
  - HYPOVENTILATION [None]
  - STATUS EPILEPTICUS [None]
  - COMPLEX PARTIAL SEIZURES [None]
  - HYPOTONIA [None]
  - RESPIRATORY ACIDOSIS [None]
